FAERS Safety Report 21257159 (Version 1)
Quarter: 2022Q3

REPORT INFORMATION
  Report Type: Spontaneous
  Country: FR (occurrence: FR)
  Receive Date: 20220826
  Receipt Date: 20220826
  Transmission Date: 20221026
  Serious: Yes (Other)
  Sender: FDA-Public Use
  Company Number: None

PATIENT
  Age: 14 Year
  Sex: Female
  Weight: 29 kg

DRUGS (3)
  1. FLUOXETINE [Suspect]
     Active Substance: FLUOXETINE HYDROCHLORIDE
     Indication: Depression
     Dosage: UNIT DOSE: 20 MG, FREQUENCY TIME : 1 DAY, DURATION: 43 DAYS
     Route: 065
     Dates: start: 20220530, end: 20220712
  2. MELATONIN [Concomitant]
     Active Substance: MELATONIN
     Indication: Product used for unknown indication
     Dosage: CIRCADIN 2 MG, PROLONGED-RELEASE TABLET, UNIT DOSE: 2 MG, FREQUENCY TIME : 1 DAY
  3. CYAMEMAZINE [Concomitant]
     Active Substance: CYAMEMAZINE
     Indication: Depression
     Dosage: TERCIAN 40 MG/ML, ORAL SOLUTION IN DROPS, UNIT DOSE 15 GTT, FREQUENCY TIME : 1 DAY
     Dates: start: 20220530

REACTIONS (1)
  - Hepatocellular injury [Recovering/Resolving]

NARRATIVE: CASE EVENT DATE: 20220704
